FAERS Safety Report 5616002-3 (Version None)
Quarter: 2008Q1

REPORT INFORMATION
  Report Type: 
  Country: None (occurrence: None)
  Receive Date: 20080206
  Receipt Date: 20080125
  Transmission Date: 20080703
  Serious: Yes (Death)
  Sender: FDA-Public Use
  Company Number: US-PFIZER INC-2006072023

PATIENT
  Sex: Male
  Weight: 79.4 kg

DRUGS (28)
  1. NEURONTIN [Suspect]
     Indication: NEURALGIA
  2. THALIDOMIDE [Concomitant]
     Route: 065
  3. ADVAIR DISKUS 100/50 [Concomitant]
     Route: 065
  4. ALBUTEROL [Concomitant]
     Route: 065
  5. AMIODARONE HCL [Concomitant]
     Route: 065
  6. BUDESONIDE [Concomitant]
     Route: 065
  7. CELEXA [Concomitant]
     Route: 065
  8. WARFARIN SODIUM [Concomitant]
     Route: 065
  9. CLONIDINE [Concomitant]
     Route: 065
  10. DECADRON [Concomitant]
     Route: 065
  11. FUROSEMIDE [Concomitant]
     Route: 065
  12. DIFLUCAN [Concomitant]
     Route: 065
  13. LABETALOL HCL [Concomitant]
     Route: 065
  14. LACTULOSE [Concomitant]
     Route: 065
  15. LISINOPRIL [Concomitant]
     Route: 065
  16. VITAMIN CAP [Concomitant]
     Route: 065
  17. PERCOCET [Concomitant]
     Route: 065
  18. PHOSLO [Concomitant]
     Route: 065
  19. PROCRIT [Concomitant]
     Route: 065
  20. PROTONIX [Concomitant]
     Route: 065
  21. SULFAMETHOXAZOLE [Concomitant]
     Route: 065
  22. RESTORIL [Concomitant]
     Route: 065
  23. ZOCOR [Concomitant]
     Route: 065
  24. SPIRIVA [Concomitant]
     Route: 065
  25. OXYGEN [Concomitant]
     Route: 065
  26. MAGNESIUM [Concomitant]
     Route: 065
  27. ASCORBIC ACID [Concomitant]
     Route: 065
  28. REVLIMID [Concomitant]
     Route: 065

REACTIONS (4)
  - CARDIAC DISORDER [None]
  - DRUG INEFFECTIVE [None]
  - MULTIPLE MYELOMA [None]
  - NEUROPATHY PERIPHERAL [None]
